FAERS Safety Report 7062747 (Version 5)
Quarter: 2013Q3

REPORT INFORMATION
  Report Type: Report from Study
  Country: DE (occurrence: DE)
  Receive Date: 20090724
  Receipt Date: 20130815
  Transmission Date: 20140515
  Serious: Yes (Hospitalization, Other)
  Sender: FDA-Public Use
  Company Number: DE-ABBOTT-09P-062-0584865-00

PATIENT
  Age: 27 Year
  Sex: Female
  Weight: 57 kg

DRUGS (6)
  1. HUMIRA [Suspect]
     Indication: CROHN^S DISEASE
     Route: 058
     Dates: start: 20080305, end: 20080305
  2. HUMIRA [Suspect]
     Dosage: WEEK 2
     Route: 058
  3. HUMIRA [Suspect]
     Route: 058
  4. METRONIDAZOLE [Concomitant]
     Indication: ABDOMINAL PAIN
     Dates: start: 20090311, end: 20090419
  5. METRONIDAZOLE [Concomitant]
     Indication: SUPERINFECTION
  6. SALOFALK [Concomitant]
     Indication: CROHN^S DISEASE
     Dates: start: 20090409

REACTIONS (1)
  - Crohn^s disease [Recovered/Resolved]
